FAERS Safety Report 24058955 (Version 1)
Quarter: 2024Q3

REPORT INFORMATION
  Report Type: Spontaneous
  Country: US (occurrence: US)
  Receive Date: 20240708
  Receipt Date: 20240708
  Transmission Date: 20241016
  Serious: No
  Sender: ABBVIE
  Company Number: US-ABBVIE-5830262

PATIENT
  Sex: Female

DRUGS (3)
  1. HUMIRA [Suspect]
     Active Substance: ADALIMUMAB
     Indication: Product used for unknown indication
     Route: 058
  2. COSENTYX [Concomitant]
     Active Substance: SECUKINUMAB
     Indication: Product used for unknown indication
  3. TREMFYA [Suspect]
     Active Substance: GUSELKUMAB
     Indication: Product used for unknown indication

REACTIONS (1)
  - Drug ineffective [Unknown]
